FAERS Safety Report 9928039 (Version 1)
Quarter: 2014Q1

REPORT INFORMATION
  Report Type: Report from Study
  Country: US (occurrence: US)
  Receive Date: 20140227
  Receipt Date: 20140227
  Transmission Date: 20141002
  Serious: Yes (Death)
  Sender: FDA-Public Use
  Company Number: US-ROCHE-1355791

PATIENT
  Age: 53 Year
  Sex: Female
  Weight: 77.5 kg

DRUGS (2)
  1. BEVACIZUMAB [Suspect]
     Indication: GLIOBLASTOMA
     Route: 065
  2. BLINDED DASATINIB [Suspect]
     Indication: GLIOBLASTOMA
     Route: 048
     Dates: start: 20131219, end: 20140130

REACTIONS (1)
  - Disease progression [Fatal]
